FAERS Safety Report 10440863 (Version 1)
Quarter: 2014Q3

REPORT INFORMATION
  Report Type: Spontaneous
  Country: US (occurrence: US)
  Receive Date: 20140909
  Receipt Date: 20140909
  Transmission Date: 20150326
  Serious: No
  Sender: FDA-Public Use
  Company Number: US-BAYER-2014-134419

PATIENT
  Sex: Male
  Weight: 81.63 kg

DRUGS (2)
  1. ALEVE [Suspect]
     Active Substance: NAPROXEN SODIUM
     Indication: TRIGEMINAL NEURALGIA
     Dosage: 2 DF, PRN
     Route: 048
     Dates: start: 201408
  2. ALEVE [Suspect]
     Active Substance: NAPROXEN SODIUM
     Indication: TRIGEMINAL NEURALGIA
     Dosage: 2 DF, BID
     Route: 048
     Dates: start: 201408

REACTIONS (1)
  - Extra dose administered [None]

NARRATIVE: CASE EVENT DATE: 201408
